FAERS Safety Report 4815970-7 (Version None)
Quarter: 2005Q4

REPORT INFORMATION
  Report Type: 
  Country: None (occurrence: None)
  Receive Date: 20051031
  Receipt Date: 20050919
  Transmission Date: 20060501
  Serious: Yes (Death, Hospitalization)
  Sender: FDA-Public Use
  Company Number: SE-ROCHE-418344

PATIENT
  Age: 35 Year
  Sex: Male

DRUGS (13)
  1. CYMEVENE [Suspect]
     Indication: CYTOMEGALOVIRUS GASTROINTESTINAL INFECTION
     Route: 042
     Dates: start: 20050927
  2. CYMEVENE [Suspect]
     Route: 042
     Dates: start: 20050914, end: 20050916
  3. CYMEVENE [Suspect]
     Dosage: TREATMENT FOR REACTIVATED CMV INFECTION.
     Route: 042
     Dates: start: 20050902, end: 20050909
  4. URSO FALK [Concomitant]
  5. SOLU-MEDROL [Concomitant]
     Dosage: POWDER AND SOLVENT FOR SOLUTION FOR INJECTION
  6. CALCIUM-SANDOZ [Concomitant]
  7. PRECORTALON [Concomitant]
     Dosage: TRADE NAME = PRECORTALON AQUOSUM
  8. DICLOCIL [Concomitant]
  9. SANDIMUN [Concomitant]
  10. DIFLUCAN [Concomitant]
  11. LOSEC [Concomitant]
     Dosage: POWDER FOR SOLUTION FOR INFUSION
  12. ACETYLCYSTEINE [Concomitant]
  13. NAVOBAN [Concomitant]

REACTIONS (10)
  - ANISOCYTOSIS [None]
  - DYSPNOEA [None]
  - HYPERBILIRUBINAEMIA [None]
  - LEUKOPENIA [None]
  - LUNG INFILTRATION [None]
  - RED BLOOD CELL POIKILOCYTES PRESENT [None]
  - RED BLOOD CELL SCHISTOCYTES PRESENT [None]
  - RENAL FAILURE [None]
  - TACHYCARDIA [None]
  - THROMBOTIC THROMBOCYTOPENIC PURPURA [None]
